FAERS Safety Report 5038774-1 (Version None)
Quarter: 2006Q2

REPORT INFORMATION
  Report Type: 
  Country: None (occurrence: None)
  Receive Date: 20060629
  Receipt Date: 20060619
  Transmission Date: 20061013
  Serious: Yes (Other)
  Sender: FDA-Public Use
  Company Number: PHEH2006US08026

PATIENT
  Age: 50 Year
  Sex: Female
  Weight: 72.562 kg

DRUGS (2)
  1. SANDOSTATIN LAR [Suspect]
     Indication: CARCINOID SYNDROME
     Dosage: 30 MG, QMO
     Route: 030
     Dates: start: 20050801
  2. NATURAL REMEDIES [Concomitant]

REACTIONS (11)
  - ANXIETY [None]
  - CHEMOTHERAPY [None]
  - DEAFNESS BILATERAL [None]
  - DIZZINESS [None]
  - EMBOLISM [None]
  - IMPAIRED DRIVING ABILITY [None]
  - METASTASES TO CENTRAL NERVOUS SYSTEM [None]
  - METASTASES TO LIVER [None]
  - MOTION SICKNESS [None]
  - TUNNEL VISION [None]
  - VISUAL FIELD DEFECT [None]
